FAERS Safety Report 5913510-2 (Version None)
Quarter: 2008Q4

REPORT INFORMATION
  Report Type: 
  Country: None (occurrence: None)
  Receive Date: 20081006
  Receipt Date: 20080922
  Transmission Date: 20090506
  Serious: Yes (Hospitalization)
  Sender: FDA-Public Use
  Company Number: US024480

PATIENT
  Sex: Male

DRUGS (4)
  1. PROVIGIL [Suspect]
     Dosage: 200 MG
  2. AVINZA [Concomitant]
  3. PERCOCET [Concomitant]
  4. KLONOPIN [Concomitant]

REACTIONS (3)
  - COMA [None]
  - HALLUCINATION [None]
  - NEUROLEPTIC MALIGNANT SYNDROME [None]
